FAERS Safety Report 24444070 (Version 2)
Quarter: 2024Q4

REPORT INFORMATION
  Report Type: Report from Study
  Country: US (occurrence: US)
  Receive Date: 20241016
  Receipt Date: 20241017
  Transmission Date: 20250115
  Serious: No
  Sender: ROCHE
  Company Number: US-ROCHE-2665551

PATIENT
  Age: 37 Year
  Sex: Female

DRUGS (9)
  1. RITUXAN [Suspect]
     Active Substance: RITUXIMAB
     Indication: Multiple sclerosis
     Dosage: DATE OF TREATMENT: 08-SEP-2022 .
     Route: 041
  2. RITUXAN [Suspect]
     Active Substance: RITUXIMAB
     Indication: Rheumatoid arthritis
     Route: 041
  3. RITUXAN [Suspect]
     Active Substance: RITUXIMAB
     Indication: Demyelination
     Dosage: DOS: 03/SEP/2020, 10/JAN/2022?1000MG EVERY 21 DAYS
     Route: 041
  4. ALBUTEROL SULFATE [Concomitant]
     Active Substance: ALBUTEROL SULFATE
     Dosage: INHALE 2 PUFFS INTO THE LUNGS 4 TIMES DAILY AS NEEDED ; ONGOING : YES
     Route: 055
  5. VITAMIN C [Concomitant]
     Active Substance: ASCORBIC ACID
     Dosage: ONGOING : YES
     Route: 048
  6. VITAMIN D3 [Concomitant]
     Active Substance: CHOLECALCIFEROL
     Dosage: ONGOING : YES
     Route: 048
  7. NEXPLANON [Concomitant]
     Active Substance: ETONOGESTREL
     Dosage: 1 EACH ONCE ;ONGOING : YES
     Route: 058
  8. FLONASE [Concomitant]
     Active Substance: FLUTICASONE PROPIONATE
     Dosage: 2 SPRAYS INTO EACH NOSTRIL DAILY ; ONGOING : YES
     Route: 045
  9. ADVIL [Concomitant]
     Active Substance: IBUPROFEN
     Dosage: AS NEEDED ;ONGOING : YES
     Route: 048

REACTIONS (2)
  - Off label use [Unknown]
  - No adverse event [Unknown]
